FAERS Safety Report 26179715 (Version 2)
Quarter: 2025Q4

REPORT INFORMATION
  Report Type: Spontaneous
  Country: JP (occurrence: JP)
  Receive Date: 20251219
  Receipt Date: 20251229
  Transmission Date: 20260117
  Serious: Yes (Hospitalization, Other)
  Sender: ABBVIE
  Company Number: JP-ABBVIE-6597762

PATIENT
  Age: 63 Year
  Sex: Male

DRUGS (3)
  1. RINVOQ [Suspect]
     Active Substance: UPADACITINIB
     Indication: Colitis ulcerative
     Dosage: 45 MILLIGRAM
     Route: 048
     Dates: start: 202512, end: 20251218
  2. RINVOQ [Suspect]
     Active Substance: UPADACITINIB
     Indication: Colitis ulcerative
     Dosage: 45 MILLIGRAM
     Route: 048
     Dates: start: 20251202, end: 202512
  3. INFLIXIMAB [Concomitant]
     Active Substance: INFLIXIMAB
     Indication: Product used for unknown indication

REACTIONS (6)
  - Gastrointestinal perforation [Recovered/Resolved]
  - Intestinal haemorrhage [Unknown]
  - Clostridium test positive [Recovered/Resolved]
  - Anaemia [Unknown]
  - Gastrointestinal disorder [Unknown]
  - Shock haemorrhagic [Unknown]

NARRATIVE: CASE EVENT DATE: 20251201
